FAERS Safety Report 25714373 (Version 1)
Quarter: 2025Q3

REPORT INFORMATION
  Report Type: Spontaneous
  Country: US (occurrence: US)
  Receive Date: 20250822
  Receipt Date: 20250822
  Transmission Date: 20251020
  Serious: No
  Sender: AVERITAS
  Company Number: US-GRUNENTHAL-2025-113020

PATIENT
  Age: 73 Year
  Sex: Female
  Weight: 90.703 kg

DRUGS (3)
  1. QUTENZA [Suspect]
     Active Substance: CAPSAICIN
     Indication: Diabetic neuropathy
     Route: 061
     Dates: start: 20250609, end: 20250609
  2. GABAPENTIN [Concomitant]
     Active Substance: GABAPENTIN
     Indication: Neuralgia
     Dosage: 800 MILLIGRAM, 4/DAY
     Route: 048
  3. UNSPECIFIED INGREDIENT [Concomitant]
     Active Substance: UNSPECIFIED INGREDIENT
     Indication: Product used for unknown indication
     Route: 065

REACTIONS (2)
  - Peripheral coldness [Unknown]
  - Product use issue [Unknown]

NARRATIVE: CASE EVENT DATE: 20250609
